FAERS Safety Report 18906335 (Version 5)
Quarter: 2021Q2

REPORT INFORMATION
  Report Type: Spontaneous
  Country: US (occurrence: US)
  Receive Date: 20210217
  Receipt Date: 20210610
  Transmission Date: 20210717
  Serious: Yes (Other)
  Sender: FDA-Public Use
  Company Number: US-BAUSCH-BL-2021-004760

PATIENT
  Age: 76 Year
  Sex: Female
  Weight: 54.03 kg

DRUGS (2)
  1. UCERIS [Suspect]
     Active Substance: BUDESONIDE
  2. UCERIS [Suspect]
     Active Substance: BUDESONIDE
     Indication: COLITIS ULCERATIVE
     Route: 054
     Dates: start: 20210131, end: 20210201

REACTIONS (3)
  - Anal paraesthesia [Recovered/Resolved]
  - Rectal haemorrhage [Recovering/Resolving]
  - Anorectal discomfort [Recovered/Resolved]

NARRATIVE: CASE EVENT DATE: 20210131
